FAERS Safety Report 4652572-X (Version None)
Quarter: 2005Q2

REPORT INFORMATION
  Report Type: 
  Country: None (occurrence: None)
  Receive Date: 20050504
  Receipt Date: 20040415
  Transmission Date: 20051028
  Serious: Yes (Death, Hospitalization)
  Sender: FDA-Public Use
  Company Number: BE-JNJFOC-20040402700

PATIENT
  Age: 2 Month
  Sex: Female

DRUGS (2)
  1. CISAPRIDE [Suspect]
     Dosage: ON DISCONTINUATION ON 18-SEP-03 THE DOSE WAS 0.5MG.
     Route: 065
     Dates: start: 20030908, end: 20030918
  2. LUMINAL [Concomitant]
     Route: 049
     Dates: start: 20030725

REACTIONS (6)
  - DRUG INEFFECTIVE [None]
  - FUNDOPLICATION [None]
  - GASTRIC PERFORATION [None]
  - ILEUS [None]
  - PERITONITIS [None]
  - SHOCK [None]
